FAERS Safety Report 9695986 (Version 1)
Quarter: 2013Q4

REPORT INFORMATION
  Report Type: Spontaneous
  Country: US (occurrence: US)
  Receive Date: 20131119
  Receipt Date: 20131119
  Transmission Date: 20140711
  Serious: No
  Sender: FDA-Public Use
  Company Number: US-BAYER-2013-138626

PATIENT
  Age: 10 Year
  Sex: Female
  Weight: 34.01 kg

DRUGS (1)
  1. ALEVE CAPLET [Suspect]
     Indication: INFLAMMATION
     Dosage: 1 DF, BID
     Route: 048
     Dates: start: 20131106

REACTIONS (2)
  - Retching [Recovered/Resolved]
  - Off label use [None]
